FAERS Safety Report 6495846-2 (Version None)
Quarter: 2009Q4

REPORT INFORMATION
  Report Type: 
  Country: None (occurrence: None)
  Receive Date: 20091214
  Receipt Date: 20090819
  Transmission Date: 20100525
  Serious: No
  Sender: FDA-Public Use
  Company Number: US-BRISTOL-MYERS SQUIBB COMPANY-14748008

PATIENT
  Age: 52 Year
  Sex: Female

DRUGS (1)
  1. ABILIFY [Suspect]
     Indication: DEPRESSION
     Dosage: INITIAL DOSE 2.5MG. DOSAGE INCREASED TO 5MG ON 20MAY09
     Dates: start: 20090506, end: 20090729

REACTIONS (1)
  - MOVEMENT DISORDER [None]
